FAERS Safety Report 5932312-4 (Version None)
Quarter: 2008Q4

REPORT INFORMATION
  Report Type: 
  Country: None (occurrence: None)
  Receive Date: 20081028
  Receipt Date: 20081017
  Transmission Date: 20090506
  Serious: Yes (Life-Threatening)
  Sender: FDA-Public Use
  Company Number: US-ROCHE-588979

PATIENT
  Age: 12 Year
  Sex: Female
  Weight: 14.8 kg

DRUGS (15)
  1. OSELTAMIVIR [Suspect]
     Indication: AVIAN INFLUENZA
     Dosage: DOSAGE: THE PATIENT RECEIVED TAMIFLU (75 MG) 1/2 TAB BID AT 10 AM OF 27 SEP 2008
     Route: 048
     Dates: start: 20080927, end: 20080927
  2. OSELTAMIVIR [Suspect]
     Dosage: LAST DOSE ADMINISTERED ON 07 OCT 2008
     Route: 048
     Dates: end: 20081007
  3. BLINDED OSELTAMIVIR [Suspect]
     Indication: AVIAN INFLUENZA
     Dosage: THE PATIENT WAS ENROLLED IN SAE001 AND WAS STARTED STUDY AT 06.40 PM ON 27 SEP 2008,
     Route: 065
     Dates: start: 20080927, end: 20081007
  4. PHENOBARB [Concomitant]
     Indication: CEREBRAL PALSY
     Route: 042
     Dates: start: 20080928
  5. OMEPRAZOLE [Concomitant]
     Indication: UPPER GASTROINTESTINAL HAEMORRHAGE
     Route: 042
     Dates: start: 20080928
  6. ACETAMINOPHEN [Concomitant]
     Route: 048
     Dates: start: 20080928, end: 20080929
  7. MIDAZOLAM HCL [Concomitant]
     Indication: SEDATION
     Route: 042
     Dates: start: 20080928
  8. CHLORAL HYDRATE [Concomitant]
     Indication: SEDATION
     Route: 048
     Dates: start: 20080928
  9. SODIUM CHLORIDE [Concomitant]
     Indication: HYPOVOLAEMIC SHOCK
     Route: 042
     Dates: start: 20080928, end: 20080928
  10. DEXTROSE [Concomitant]
     Route: 042
     Dates: start: 20080928
  11. CALCIUM GLUCONATE INJ [Concomitant]
     Route: 042
     Dates: start: 20080922, end: 20080922
  12. CALCIUM GLUCONATE INJ [Concomitant]
     Route: 042
     Dates: start: 20080923, end: 20080923
  13. CALCIUM GLUCONATE INJ [Concomitant]
     Route: 042
     Dates: start: 20080925, end: 20080926
  14. CALCIUM GLUCONATE INJ [Concomitant]
     Route: 042
     Dates: start: 20080927, end: 20080928
  15. CALCIUM GLUCONATE INJ [Concomitant]
     Route: 042
     Dates: start: 20080928, end: 20080929

REACTIONS (2)
  - ACUTE RESPIRATORY DISTRESS SYNDROME [None]
  - SEPTIC SHOCK [None]
